FAERS Safety Report 9995401 (Version 1)
Quarter: 2014Q1

REPORT INFORMATION
  Report Type: Spontaneous
  Country: US (occurrence: None)
  Receive Date: 20140307
  Receipt Date: 20140307
  Transmission Date: 20141002
  Serious: No
  Sender: FDA-Public Use
  Company Number: None

PATIENT
  Age: 47 Year
  Sex: Female
  Weight: 77.11 kg

DRUGS (1)
  1. ADVAIR 250/50 [Suspect]
     Indication: ASTHMA
     Dosage: 1 PUFF TWICE DAILY INHALATION
     Route: 055
     Dates: start: 20140218, end: 20140303

REACTIONS (2)
  - Somnolence [None]
  - Activities of daily living impaired [None]
